FAERS Safety Report 6107869-3 (Version None)
Quarter: 2009Q1

REPORT INFORMATION
  Report Type: 
  Country: None (occurrence: None)
  Receive Date: 20090309
  Receipt Date: 20090223
  Transmission Date: 20090719
  Serious: Yes (Other)
  Sender: FDA-Public Use
  Company Number: PHEH2009US01202

PATIENT
  Sex: Female

DRUGS (1)
  1. METOPROLOL TARTRATE AND HYDROCHLOROTHIAZIDE [Suspect]
     Dosage: UNK
     Dates: start: 20020101

REACTIONS (3)
  - MYOCARDIAL INFARCTION [None]
  - PALLOR [None]
  - PRESYNCOPE [None]
